FAERS Safety Report 11396923 (Version 2)
Quarter: 2015Q3

REPORT INFORMATION
  Report Type: Spontaneous
  Country: US (occurrence: US)
  Receive Date: 20150819
  Receipt Date: 20150828
  Transmission Date: 20151125
  Serious: Yes (Other)
  Sender: FDA-Public Use
  Company Number: US-UNITED THERAPEUTICS-UNT-2015-009443

PATIENT
  Sex: Female
  Weight: 126.98 kg

DRUGS (4)
  1. REVATIO [Concomitant]
     Active Substance: SILDENAFIL CITRATE
     Indication: PRODUCT USED FOR UNKNOWN INDICATION
  2. OPSUMIT [Concomitant]
     Active Substance: MACITENTAN
     Indication: PRODUCT USED FOR UNKNOWN INDICATION
  3. TYVASO [Suspect]
     Active Substance: TREPROSTINIL
     Indication: PULMONARY ARTERIAL HYPERTENSION
     Dosage: 18-54 ?G, QID
     Dates: start: 20150721
  4. LETAIRIS [Suspect]
     Active Substance: AMBRISENTAN
     Indication: PULMONARY ARTERIAL HYPERTENSION
     Dosage: 10 MG, QD
     Route: 065
     Dates: start: 20141001

REACTIONS (8)
  - Rhinorrhoea [Unknown]
  - Pulmonary arterial pressure increased [Unknown]
  - Throat irritation [Unknown]
  - Productive cough [Unknown]
  - Heart rate increased [Unknown]
  - Uterine leiomyoma [Unknown]
  - Chest pain [Unknown]
  - Dizziness [Unknown]

NARRATIVE: CASE EVENT DATE: 2015
